FAERS Safety Report 4762512-0 (Version None)
Quarter: 2005Q3

REPORT INFORMATION
  Report Type: 
  Country: None (occurrence: None)
  Receive Date: 20050902
  Receipt Date: 20050404
  Transmission Date: 20060218
  Serious: Yes (Other)
  Sender: FDA-Public Use
  Company Number: 2005S1002017

PATIENT
  Sex: Female

DRUGS (4)
  1. FENTANYL [Suspect]
     Indication: PAIN
     Dosage: 50 MCG/HR; Q3D; TDER
     Route: 062
     Dates: start: 20050308, end: 20050408
  2. FENTANYL [Suspect]
     Indication: PARKINSON'S DISEASE
     Dosage: 50 MCG/HR; Q3D; TDER
     Route: 062
     Dates: start: 20050308, end: 20050408
  3. OXYCODONE HCL [Concomitant]
  4. GABAPENTIN [Concomitant]

REACTIONS (2)
  - DRUG INEFFECTIVE FOR UNAPPROVED INDICATION [None]
  - TREMOR [None]
